FAERS Safety Report 6978183-9 (Version None)
Quarter: 2010Q3

REPORT INFORMATION
  Report Type: 
  Country: None (occurrence: None)
  Receive Date: 20100913
  Receipt Date: 20100903
  Transmission Date: 20110219
  Serious: Yes (Hospitalization)
  Sender: FDA-Public Use
  Company Number: FR-ABBOTT-10P-056-0668014-00

PATIENT
  Sex: Female

DRUGS (5)
  1. HUMIRA [Suspect]
     Indication: ANKYLOSING SPONDYLITIS
     Route: 058
     Dates: start: 20100427, end: 20100606
  2. LERCANIDIPINE [Concomitant]
     Indication: HYPERTENSION
     Route: 048
     Dates: start: 20060101
  3. IRON [Concomitant]
     Indication: PROPHYLAXIS
     Route: 048
     Dates: start: 20100427
  4. FLECAINIDE ACETATE [Concomitant]
     Indication: ARRHYTHMIA
     Route: 048
     Dates: start: 20100427
  5. DIGOXIN [Concomitant]
     Indication: ARRHYTHMIA
     Route: 048

REACTIONS (2)
  - DERMATITIS BULLOUS [None]
  - PRURITUS [None]
